FAERS Safety Report 9271266 (Version 2)
Quarter: 2013Q3

REPORT INFORMATION
  Report Type: Report from Study
  Country: CA (occurrence: CA)
  Receive Date: 20130506
  Receipt Date: 20130730
  Transmission Date: 20140515
  Serious: Yes (Other)
  Sender: FDA-Public Use
  Company Number: CA-ELI_LILLY_AND_COMPANY-CA201304007753

PATIENT
  Age: 84 Year
  Sex: Female

DRUGS (11)
  1. TERIPARATIDE [Suspect]
     Indication: OSTEOPOROSIS
     Dosage: 20 UG, QD
     Route: 058
     Dates: start: 20130304
  2. ZOPICLONE [Concomitant]
     Dosage: 7.5 MG, UNKNOWN
  3. ADVAIR [Concomitant]
     Dosage: 250 UG, UNKNOWN
  4. VENTOLIN                                /SCH/ [Concomitant]
     Dosage: 600 UG, UNKNOWN
  5. DILAUDID [Concomitant]
     Dosage: 1 MG, PRN
  6. ACETAMINOPHEN [Concomitant]
  7. VALSARTAN [Concomitant]
     Dosage: 160 MG, UNK
  8. DIAMINE                            /01801501/ [Concomitant]
  9. SYNTHROID [Concomitant]
     Dosage: 0.05 MG, UNKNOWN
  10. ATORVASTATIN [Concomitant]
  11. CAL-D [Concomitant]
     Dosage: 400 IU/ 500 MG

REACTIONS (5)
  - Blood pressure fluctuation [Recovered/Resolved]
  - Heart rate decreased [Recovered/Resolved]
  - Metastases to lung [Not Recovered/Not Resolved]
  - Dyspnoea [Not Recovered/Not Resolved]
  - Fatigue [Not Recovered/Not Resolved]
